FAERS Safety Report 8879021 (Version 2)
Quarter: 2013Q1

REPORT INFORMATION
  Report Type: Report from Study
  Country: US (occurrence: US)
  Receive Date: 20121026
  Receipt Date: 20130211
  Transmission Date: 20140127
  Serious: Yes (Hospitalization)
  Sender: FDA-Public Use
  Company Number: US-VERTEX PHARMACEUTICAL INC.-2012-023511

PATIENT
  Sex: Male
  Weight: 94 kg

DRUGS (9)
  1. VX-770 [Suspect]
     Indication: CYSTIC FIBROSIS
     Dosage: 150 MG, BID
     Route: 048
     Dates: start: 20120619
  2. ZITHROMAX [Concomitant]
     Dosage: 500 MG, UNK
     Route: 048
  3. HYPERTONIC SALINE SOLUTION [Concomitant]
  4. ADVAIR [Concomitant]
  5. CREON [Concomitant]
  6. DUONEB [Concomitant]
  7. CALCIUM/VITAMIN D [Concomitant]
     Dosage: UNK, BID
  8. TOBI [Concomitant]
     Dosage: 300 UNK, BID
  9. COLISTIN [Concomitant]
     Dosage: 150 MG, BID

REACTIONS (4)
  - Infective pulmonary exacerbation of cystic fibrosis [Recovered/Resolved]
  - Chest discomfort [Recovered/Resolved]
  - Cough [Not Recovered/Not Resolved]
  - Drug dose omission [Not Recovered/Not Resolved]
